FAERS Safety Report 24754961 (Version 1)
Quarter: 2024Q4

REPORT INFORMATION
  Report Type: Spontaneous
  Country: US (occurrence: US)
  Receive Date: 20241219
  Receipt Date: 20241219
  Transmission Date: 20250115
  Serious: Yes (Hospitalization, Other)
  Sender: AMGEN
  Company Number: US-AMGEN-USASP2024245657

PATIENT
  Age: 20 Year
  Sex: Female

DRUGS (11)
  1. PREDNISONE [Suspect]
     Active Substance: PREDNISONE
     Indication: Immunosuppressant drug therapy
     Dosage: 5 MILLIGRAM, QD
     Route: 065
  2. CORTICOSTEROID NOS [Concomitant]
     Active Substance: CORTICOSTEROID NOS
     Dosage: 10 MILLIGRAM/KILOGRAM, QD,  FOR 3 DAYS
     Route: 040
  3. CORTICOSTEROID NOS [Concomitant]
     Active Substance: CORTICOSTEROID NOS
     Dosage: 5 MILLIGRAM/KILOGRAM, QD
     Route: 040
  4. CORTICOSTEROID NOS [Concomitant]
     Active Substance: CORTICOSTEROID NOS
     Dosage: 4 MILLIGRAM/KILOGRAM, QD
     Route: 040
  5. CORTICOSTEROID NOS [Concomitant]
     Active Substance: CORTICOSTEROID NOS
     Dosage: 3 MILLIGRAM/KILOGRAM, QD
     Route: 040
  6. CORTICOSTEROID NOS [Concomitant]
     Active Substance: CORTICOSTEROID NOS
     Dosage: 2 MILLIGRAM/KILOGRAM, QD
     Route: 040
  7. CORTICOSTEROID NOS [Concomitant]
     Active Substance: CORTICOSTEROID NOS
     Dosage: 1 MILLIGRAM/KILOGRAM, QD
     Route: 040
  8. INFLIXIMAB [Concomitant]
     Active Substance: INFLIXIMAB
     Dosage: SINGLE DOSES
  9. INFLIXIMAB [Concomitant]
     Active Substance: INFLIXIMAB
     Dosage: 5 MILLIGRAM/KILOGRAM
  10. INFLIXIMAB [Concomitant]
     Active Substance: INFLIXIMAB
     Dosage: 10 MILLIGRAM/KILOGRAM
  11. TACROLIMUS [Concomitant]
     Active Substance: TACROLIMUS
     Dosage: 1 MILLIGRAM, Q12H

REACTIONS (10)
  - Human rhinovirus test positive [Unknown]
  - Enterovirus test positive [Unknown]
  - Intestine transplant rejection [Unknown]
  - Idiopathic intracranial hypertension [Unknown]
  - Post transplant lymphoproliferative disorder [Unknown]
  - Septic shock [Unknown]
  - Therapy non-responder [Unknown]
  - Headache [Unknown]
  - Pyrexia [Unknown]
  - Epstein-Barr virus test positive [Unknown]
